FAERS Safety Report 6238914-2 (Version None)
Quarter: 2009Q2

REPORT INFORMATION
  Report Type: 
  Country: None (occurrence: None)
  Receive Date: 20090622
  Receipt Date: 20090610
  Transmission Date: 20091009
  Serious: Yes (Other)
  Sender: FDA-Public Use
  Company Number: GB-PFIZER INC-2009225117

PATIENT
  Age: 51 Year

DRUGS (4)
  1. SULFASALAZINE [Suspect]
     Indication: PSORIATIC ARTHROPATHY
     Dosage: 2 G, 1X/DAY
     Route: 048
     Dates: start: 20070601, end: 20090201
  2. ADCAL-D3 [Concomitant]
     Dosage: 1 DF, 2X/DAY
     Route: 048
  3. EVOREL [Concomitant]
     Dosage: 75 UG, UNK
     Route: 062
  4. PARACETAMOL [Concomitant]
     Dosage: 1 G, AS NEEDED
     Route: 048

REACTIONS (2)
  - CONDITION AGGRAVATED [None]
  - PSORIASIS [None]
